FAERS Safety Report 14826481 (Version 1)
Quarter: 2018Q2

REPORT INFORMATION
  Report Type: Report from Study
  Country: BR (occurrence: BR)
  Receive Date: 20180430
  Receipt Date: 20180430
  Transmission Date: 20180711
  Serious: Yes (Other)
  Sender: FDA-Public Use
  Company Number: PHHY2018BR061767

PATIENT
  Age: 5 Year
  Sex: Male
  Weight: 30 kg

DRUGS (3)
  1. RISPERIDONE. [Concomitant]
     Active Substance: RISPERIDONE
     Dosage: 2 DF (1 MG), QD
     Route: 065
  2. RITALIN LA [Suspect]
     Active Substance: METHYLPHENIDATE HYDROCHLORIDE
     Indication: ATTENTION DEFICIT/HYPERACTIVITY DISORDER
     Dosage: 10 MG, QD
     Route: 048
     Dates: start: 20180403, end: 20180403
  3. RISPERIDONE. [Concomitant]
     Active Substance: RISPERIDONE
     Indication: PSYCHOMOTOR HYPERACTIVITY
     Dosage: 10 MG, UNK
     Route: 048
     Dates: start: 2015

REACTIONS (19)
  - Feeling of despair [Recovering/Resolving]
  - Peripheral coldness [Recovering/Resolving]
  - Nervousness [Recovering/Resolving]
  - Disorientation [Recovered/Resolved]
  - Aggression [Recovered/Resolved]
  - Erythema [Recovered/Resolved]
  - Abnormal behaviour [Recovered/Resolved]
  - Pallor [Recovering/Resolving]
  - Hyperhidrosis [Recovered/Resolved]
  - Trismus [Recovering/Resolving]
  - Drug administered to patient of inappropriate age [Unknown]
  - Tachycardia [Recovered/Resolved]
  - Mydriasis [Recovered/Resolved]
  - Agitation [Recovered/Resolved]
  - Self esteem decreased [Unknown]
  - Anger [Recovered/Resolved]
  - Mental disorder [Recovering/Resolving]
  - Fear [Unknown]
  - Anaemia [Recovering/Resolving]

NARRATIVE: CASE EVENT DATE: 20180403
